FAERS Safety Report 5737386-1 (Version None)
Quarter: 2008Q2

REPORT INFORMATION
  Report Type: 
  Country: None (occurrence: None)
  Receive Date: 20080514
  Receipt Date: 20080128
  Transmission Date: 20081010
  Serious: No
  Sender: FDA-Public Use
  Company Number: US-BRISTOL-MYERS SQUIBB COMPANY-14056998

PATIENT
  Sex: Female

DRUGS (9)
  1. IXEMPRA KIT [Suspect]
     Indication: BREAST CANCER METASTATIC
     Dosage: RECEIVED 2 DOSES
  2. BENADRYL [Concomitant]
     Route: 048
     Dates: start: 20080103, end: 20080124
  3. TAGAMET [Concomitant]
     Route: 042
     Dates: start: 20080103, end: 20080124
  4. XANAX [Concomitant]
  5. FOSAMAX [Concomitant]
  6. PROZAC [Concomitant]
  7. SINGLET [Concomitant]
  8. BUMEX [Concomitant]
  9. LIPITOR [Concomitant]

REACTIONS (2)
  - INFUSION SITE RASH [None]
  - VEIN DISCOLOURATION [None]
